FAERS Safety Report 13241544 (Version 1)
Quarter: 2017Q1

REPORT INFORMATION
  Report Type: Spontaneous
  Country: FR (occurrence: FR)
  Receive Date: 20170216
  Receipt Date: 20170216
  Transmission Date: 20170428
  Serious: Yes (Hospitalization)
  Sender: FDA-Public Use
  Company Number: FR-TEVA-738074ROM

PATIENT
  Age: 48 Year
  Sex: Female

DRUGS (26)
  1. BELIMUMAB [Suspect]
     Active Substance: BELIMUMAB
     Indication: ACUTE CUTANEOUS LUPUS ERYTHEMATOSUS
     Dosage: FIRST COURSE
     Dates: start: 20161007, end: 20161007
  2. BELIMUMAB [Suspect]
     Active Substance: BELIMUMAB
     Dosage: SECOND COURSE
     Dates: start: 20161107, end: 20161107
  3. METHYLPREDNISOLONE. [Concomitant]
     Active Substance: METHYLPREDNISOLONE
     Dates: start: 20161107, end: 20161107
  4. NICORANDIL 10 MG [Concomitant]
     Dosage: 2 DOSAGE FORMS DAILY;
  5. PROTOPIC [Concomitant]
     Active Substance: TACROLIMUS
     Dosage: 2 DOSAGE FORMS DAILY;
     Dates: start: 20161223
  6. METHYLPREDNISOLONE. [Concomitant]
     Active Substance: METHYLPREDNISOLONE
     Dates: start: 20161213, end: 20161213
  7. METHYLPREDNISOLONE. [Concomitant]
     Active Substance: METHYLPREDNISOLONE
     Dates: start: 20161223, end: 20161223
  8. PREDNISONE. [Concomitant]
     Active Substance: PREDNISONE
     Dosage: 15 MILLIGRAM DAILY;
  9. GLYCEROL\PARAFFIN [Concomitant]
     Active Substance: GLYCERIN\PARAFFIN
  10. SPIRONOLACTONE. [Suspect]
     Active Substance: SPIRONOLACTONE
     Dosage: 25 MILLIGRAM DAILY;
     Dates: start: 20161210, end: 201612
  11. BELIMUMAB [Suspect]
     Active Substance: BELIMUMAB
     Dosage: THIRD COURSE
     Dates: start: 20161213, end: 20161213
  12. METHYLPREDNISOLONE. [Concomitant]
     Active Substance: METHYLPREDNISOLONE
     Dates: start: 20161007, end: 20161007
  13. FOLINATE DE CALCIUM [Concomitant]
     Active Substance: LEUCOVORIN CALCIUM
  14. FERROUS SULFATE. [Concomitant]
     Active Substance: FERROUS SULFATE
     Dosage: 80 MILLIGRAM DAILY;
  15. CACIT VITAMINE D3 [Concomitant]
     Active Substance: CALCIUM CARBONATE\CHOLECALCIFEROL
     Dosage: 1 DOSAGE FORMS DAILY;
  16. POTASSIUM CHLORIDE. [Concomitant]
     Active Substance: POTASSIUM CHLORIDE
     Dosage: 1800 MILLIGRAM DAILY;
  17. ESOMEPRAZOLE [Concomitant]
     Active Substance: ESOMEPRAZOLE
     Dosage: 40 MILLIGRAM DAILY;
  18. SPIRONOLACTONE. [Suspect]
     Active Substance: SPIRONOLACTONE
     Dosage: 50 MILLIGRAM DAILY;
     Dates: start: 201612
  19. DELURSAN 250 MG [Suspect]
     Active Substance: URSODIOL
     Dosage: 750 MILLIGRAM DAILY; 2 DF IN THE MORNING AND 1 DF IN THE EVENING
     Route: 048
     Dates: start: 20161210, end: 20170102
  20. BELIMUMAB [Suspect]
     Active Substance: BELIMUMAB
     Dosage: FOURTH COURSE
     Dates: start: 20161223, end: 20161223
  21. BACTRIM [Concomitant]
     Active Substance: SULFAMETHOXAZOLE\TRIMETHOPRIM
  22. PLAQUENIL [Concomitant]
     Active Substance: HYDROXYCHLOROQUINE SULFATE
     Dosage: 2 DOSAGE FORMS DAILY; 5 DAYS A WEEK, LONG-TERM TREATMENT
  23. METFORMINE [Concomitant]
     Active Substance: METFORMIN HYDROCHLORIDE
     Dosage: 1500 MILLIGRAM DAILY;
  24. LOCAPRED [Concomitant]
     Active Substance: DESONIDE
     Dosage: 1 DOSAGE FORMS DAILY;
  25. REPAGLINIDE. [Concomitant]
     Active Substance: REPAGLINIDE
     Dosage: 1 DOSAGE FORMS DAILY;
  26. CLAIRYG [Concomitant]
     Active Substance: HUMAN IMMUNOGLOBULIN G
     Route: 058
     Dates: start: 20161223

REACTIONS (1)
  - Hepatic encephalopathy [Unknown]

NARRATIVE: CASE EVENT DATE: 20161226
